FAERS Safety Report 6591496-8 (Version None)
Quarter: 2010Q1

REPORT INFORMATION
  Report Type: 
  Country: None (occurrence: None)
  Receive Date: 20100219
  Receipt Date: 20100209
  Transmission Date: 20100710
  Serious: Yes (Other)
  Sender: FDA-Public Use
  Company Number: FR-ABBOTT-10P-056-0625499-00

PATIENT
  Sex: Male

DRUGS (1)
  1. MONOZECLAR [Suspect]
     Indication: BRONCHITIS
     Route: 048
     Dates: start: 20100201, end: 20100201

REACTIONS (5)
  - BLOOD IRON INCREASED [None]
  - HAEMOCHROMATOSIS [None]
  - LIVER FUNCTION TEST ABNORMAL [None]
  - SERUM FERRITIN INCREASED [None]
  - VOMITING [None]
